FAERS Safety Report 14354190 (Version 1)
Quarter: 2018Q1

REPORT INFORMATION
  Report Type: Report from Study
  Country: SG (occurrence: SG)
  Receive Date: 20180105
  Receipt Date: 20180105
  Transmission Date: 20180509
  Serious: Yes (Other)
  Sender: FDA-Public Use
  Company Number: SG-ROCHE-1740237

PATIENT
  Age: 65 Year
  Sex: Male
  Weight: 66 kg

DRUGS (5)
  1. PLACEBO [Suspect]
     Active Substance: UNSPECIFIED INGREDIENT
     Indication: POLYPOIDAL CHOROIDAL VASCULOPATHY
     Dosage: RIGHT EYE, MOST RECENT DOSE- 10/MAR/2016
     Route: 065
     Dates: start: 20140617, end: 20140617
  2. RANIBIZUMAB. [Suspect]
     Active Substance: RANIBIZUMAB
     Indication: POLYPOIDAL CHOROIDAL VASCULOPATHY
     Dosage: RIGHT EYE, MOST RECENT DOSE- 10/MAR/2016
     Route: 031
     Dates: start: 20140617, end: 20140617
  3. RANIBIZUMAB. [Suspect]
     Active Substance: RANIBIZUMAB
     Route: 031
     Dates: start: 20160310, end: 20160310
  4. PLACEBO [Suspect]
     Active Substance: UNSPECIFIED INGREDIENT
     Route: 031
     Dates: start: 20160310, end: 20160310
  5. LASER THERAPY [Concomitant]
     Active Substance: DEVICE
     Route: 065
     Dates: start: 20140617

REACTIONS (1)
  - Blindness [Not Recovered/Not Resolved]

NARRATIVE: CASE EVENT DATE: 20160317
